FAERS Safety Report 8998052 (Version 2)
Quarter: 2013Q1

REPORT INFORMATION
  Report Type: Spontaneous
  Country: CN (occurrence: CN)
  Receive Date: 20130104
  Receipt Date: 20130208
  Transmission Date: 20140127
  Serious: Yes (Other)
  Sender: FDA-Public Use
  Company Number: CN-ASTRAZENECA-2012SE95884

PATIENT
  Age: 58 Year
  Sex: Male

DRUGS (2)
  1. LOSEC [Suspect]
     Indication: GASTRITIS
     Route: 048
     Dates: start: 201209
  2. PROSTAT [Concomitant]
     Indication: PROSTATIC DISORDER
     Route: 048
     Dates: start: 201211

REACTIONS (3)
  - Dyspnoea [Unknown]
  - Hyperhidrosis [Unknown]
  - Abdominal pain [Unknown]
